FAERS Safety Report 13517730 (Version 2)
Quarter: 2017Q2

REPORT INFORMATION
  Report Type: Report from Study
  Country: AU (occurrence: AU)
  Receive Date: 20170505
  Receipt Date: 20170523
  Transmission Date: 20170830
  Serious: Yes (Life-Threatening, Hospitalization, Other)
  Sender: FDA-Public Use
  Company Number: AU-VIIV HEALTHCARE LIMITED-AU2017GSK065063

PATIENT
  Age: 45 Year
  Sex: Male
  Weight: 93.8 kg

DRUGS (4)
  1. ABACAVIRSULPHATE+DOLUTEGRAVIR+LAMIVUDINE [Suspect]
     Active Substance: ABACAVIR SULFATE\DOLUTEGRAVIR SODIUM\LAMIVUDINE
     Indication: HIV INFECTION
     Dosage: UNK
     Dates: start: 20170314
  2. ATORVASTATIN [Concomitant]
     Active Substance: ATORVASTATIN
     Dosage: 80 MG, UNK
  3. METOPROLOL. [Concomitant]
     Active Substance: METOPROLOL
     Dosage: 25 MG, UNK
  4. ASPIRIN. [Concomitant]
     Active Substance: ASPIRIN
     Dosage: 325 MG, UNK

REACTIONS (1)
  - Myocardial infarction [Recovered/Resolved]

NARRATIVE: CASE EVENT DATE: 20170402
